FAERS Safety Report 8123254-7 (Version None)
Quarter: 2012Q1

REPORT INFORMATION
  Report Type: 
  Country: None (occurrence: None)
  Receive Date: 20120208
  Receipt Date: 20120126
  Transmission Date: 20120608
  Serious: Yes (Other)
  Sender: FDA-Public Use
  Company Number: IT-MYLANLABS-2012S1002028

PATIENT
  Age: 34 Year
  Sex: Female

DRUGS (1)
  1. KETOPROFEN [Suspect]
     Indication: DYSMENORRHOEA
     Route: 048
     Dates: start: 20111229, end: 20111229

REACTIONS (1)
  - LIP OEDEMA [None]
